FAERS Safety Report 4749811-3 (Version None)
Quarter: 2005Q3

REPORT INFORMATION
  Report Type: 
  Country: None (occurrence: None)
  Receive Date: 20050819
  Receipt Date: 20050819
  Transmission Date: 20060218
  Serious: Yes (Other)
  Sender: FDA-Public Use
  Company Number: None

PATIENT
  Age: 42 Year
  Sex: Male
  Weight: 83.9154 kg

DRUGS (5)
  1. CORICIDIN [Suspect]
     Indication: COUGH
     Dosage: 1 TAB 3 TIMES A DAY (6 TO 7 HOURS APART)
     Dates: start: 20050725, end: 20050728
  2. CORICIDIN [Suspect]
     Indication: HYPERSENSITIVITY
     Dosage: 1 TAB 3 TIMES A DAY (6 TO 7 HOURS APART)
     Dates: start: 20050725, end: 20050728
  3. LISINOPRIL [Concomitant]
  4. TYLENOL [Concomitant]
  5. GARLIC SUPPLEMENT [Concomitant]

REACTIONS (2)
  - BLOOD PRESSURE INCREASED [None]
  - HEART RATE INCREASED [None]
